FAERS Safety Report 5445728-X (Version None)
Quarter: 2007Q3

REPORT INFORMATION
  Report Type: 
  Country: None (occurrence: None)
  Receive Date: 20070904
  Receipt Date: 20070821
  Transmission Date: 20080115
  Serious: Yes (Other)
  Sender: FDA-Public Use
  Company Number: 07-207

PATIENT
  Age: 59 Year
  Sex: Female
  Weight: 97.977 kg

DRUGS (6)
  1. METFORMIN HYDROCHLORIDE [Suspect]
     Indication: DIABETES MELLITUS
     Dosage: 1000MG TWICE DAILY
     Dates: start: 20070622
  2. NEURONTIN [Concomitant]
  3. LORTAB               (GEQ) [Concomitant]
  4. SIMVASTATIN [Concomitant]
  5. LOTREL [Concomitant]
  6. TEKTURNA [Concomitant]

REACTIONS (2)
  - DIARRHOEA [None]
  - PHARMACEUTICAL PRODUCT COMPLAINT [None]
